FAERS Safety Report 14410601 (Version 1)
Quarter: 2018Q1

REPORT INFORMATION
  Report Type: Spontaneous
  Country: JP (occurrence: JP)
  Receive Date: 20180119
  Receipt Date: 20180119
  Transmission Date: 20180509
  Serious: Yes (Death, Hospitalization)
  Sender: FDA-Public Use
  Company Number: GXJP2018JP000484

PATIENT
  Age: 82 Year
  Sex: Male

DRUGS (3)
  1. RIFAMPICIN CAPSULES [Suspect]
     Active Substance: RIFAMPIN
     Indication: PULMONARY TUBERCULOSIS
     Route: 048
  2. ETHAMBUTOL [Suspect]
     Active Substance: ETHAMBUTOL HYDROCHLORIDE
     Indication: PULMONARY TUBERCULOSIS
     Route: 065
  3. ISONIAZID. [Suspect]
     Active Substance: ISONIAZID
     Indication: PULMONARY TUBERCULOSIS
     Route: 048

REACTIONS (6)
  - Mouth haemorrhage [Fatal]
  - Platelet count decreased [Unknown]
  - Pulmonary alveolar haemorrhage [Fatal]
  - Respiratory depression [Fatal]
  - Drug eruption [Unknown]
  - Rash generalised [Unknown]
